FAERS Safety Report 4902646-0 (Version None)
Quarter: 2006Q1

REPORT INFORMATION
  Report Type: 
  Country: None (occurrence: None)
  Receive Date: 20060207
  Receipt Date: 20060131
  Transmission Date: 20060701
  Serious: Yes (Hospitalization)
  Sender: FDA-Public Use
  Company Number: PHRM2006FR00643

PATIENT
  Age: 63 Year
  Sex: Male

DRUGS (13)
  1. TAXOTERE [Suspect]
     Indication: LUNG CANCER METASTATIC
     Route: 042
     Dates: start: 20050607
  2. SOPHIDONE [Suspect]
     Dosage: 10 DF DAILY
     Route: 048
     Dates: start: 20051121
  3. LAROXYL [Suspect]
     Dosage: 25 MG DAILY
     Route: 048
     Dates: start: 20051125
  4. XATRAL - SLOW RELEASE [Suspect]
     Dosage: 5 MG DAILY
     Route: 048
     Dates: start: 20051117
  5. NEURONTIN [Concomitant]
  6. CORTANCYL [Concomitant]
  7. KARDEGIC [Concomitant]
  8. ACETAMINOPHEN [Concomitant]
  9. FORLAX [Concomitant]
  10. ESOMEPRAZOLE [Concomitant]
  11. MORPHINE [Concomitant]
  12. RADIOTHERAPY [Suspect]
     Indication: LUNG CANCER METASTATIC
     Dates: start: 20050601
  13. ZOMETA [Suspect]
     Indication: METASTASES TO BONE
     Dosage: 4 MG, QMO
     Route: 042
     Dates: start: 20050530

REACTIONS (3)
  - OSTEOLYSIS [None]
  - OSTEONECROSIS [None]
  - PAIN IN JAW [None]
